FAERS Safety Report 19990760 (Version 5)
Quarter: 2022Q1

REPORT INFORMATION
  Report Type: Report from Study
  Country: IL (occurrence: IL)
  Receive Date: 20211025
  Receipt Date: 20220329
  Transmission Date: 20220423
  Serious: Yes (Death, Hospitalization, Other)
  Sender: FDA-Public Use
  Company Number: IL-ABBVIE-21K-082-4133709-00

PATIENT
  Age: 72 Year
  Sex: Male
  Weight: 85 kg

DRUGS (14)
  1. VENETOCLAX [Suspect]
     Active Substance: VENETOCLAX
     Indication: Acute myeloid leukaemia
     Dosage: RAMP UP
     Route: 048
     Dates: start: 20201118, end: 20201118
  2. VENETOCLAX [Suspect]
     Active Substance: VENETOCLAX
     Dosage: MODIFICATION - DOSE REDUCTION
     Route: 048
     Dates: start: 20201119, end: 20201119
  3. VENETOCLAX [Suspect]
     Active Substance: VENETOCLAX
     Dosage: DISCONTINUATION PROGRESSION OF DISEASE
     Route: 048
     Dates: start: 20201120, end: 20201211
  4. AZACITIDINE [Suspect]
     Active Substance: AZACITIDINE
     Indication: Acute myeloid leukaemia
     Dosage: CYCLE 1
     Route: 058
     Dates: start: 20201118, end: 20201124
  5. AZACITIDINE [Suspect]
     Active Substance: AZACITIDINE
     Dosage: CYCLE 2
     Route: 058
     Dates: start: 20201217, end: 20201223
  6. AZACITIDINE [Suspect]
     Active Substance: AZACITIDINE
     Dosage: CYCLE 3
     Route: 058
     Dates: start: 20210114, end: 20210120
  7. AZACITIDINE [Suspect]
     Active Substance: AZACITIDINE
     Dosage: CYCLE 4,DISCONTINUT-DISEASE PROGRESSION
     Route: 058
     Dates: start: 20210228, end: 20210308
  8. COVID-19 VACCINE [Concomitant]
     Indication: COVID-19 immunisation
     Route: 030
     Dates: start: 202101, end: 202101
  9. METFORMIN [Concomitant]
     Active Substance: METFORMIN HYDROCHLORIDE
     Indication: Diabetes mellitus
  10. LIPITOR [Concomitant]
     Active Substance: ATORVASTATIN CALCIUM
     Indication: Hypertension
  11. ALLOPURINOL [Concomitant]
     Active Substance: ALLOPURINOL
     Indication: Tumour lysis syndrome
     Dates: start: 20201101
  12. ZOFRAN [Concomitant]
     Active Substance: ONDANSETRON HYDROCHLORIDE
     Indication: Prophylaxis of nausea and vomiting
     Dates: start: 20210228, end: 20210304
  13. ZOFRAN [Concomitant]
     Active Substance: ONDANSETRON HYDROCHLORIDE
     Dates: start: 20210307, end: 20210308
  14. VFEND [Concomitant]
     Active Substance: VORICONAZOLE
     Indication: Prophylaxis
     Dates: start: 20210116, end: 20210120

REACTIONS (7)
  - Acute myeloid leukaemia [Fatal]
  - Neutropenia [Recovered/Resolved]
  - Neutropenia [Recovered/Resolved]
  - Febrile neutropenia [Recovered/Resolved]
  - Neutropenia [Recovered/Resolved]
  - Head injury [Recovered/Resolved]
  - Enterococcal infection [Recovered/Resolved]

NARRATIVE: CASE EVENT DATE: 20210116
